FAERS Safety Report 19585473 (Version 2)
Quarter: 2021Q3

REPORT INFORMATION
  Report Type: Spontaneous
  Country: RU (occurrence: RU)
  Receive Date: 20210720
  Receipt Date: 20210731
  Transmission Date: 20211014
  Serious: Yes (Other)
  Sender: FDA-Public Use
  Company Number: NVSC2021RU158722

PATIENT
  Sex: Female

DRUGS (4)
  1. ALPELISIB [Suspect]
     Active Substance: ALPELISIB
     Indication: HER2 POSITIVE BREAST CANCER
     Dosage: 300 MG, QD
     Route: 065
     Dates: start: 20200918
  2. ALPELISIB [Suspect]
     Active Substance: ALPELISIB
     Dosage: 250 MG (14 DAYS AFTER SKIN TOXICITY)
     Route: 065
  3. FAMOTIDINE. [Concomitant]
     Active Substance: FAMOTIDINE
     Indication: PRODUCT USED FOR UNKNOWN INDICATION
     Dosage: 40 MG, QD
     Route: 065
  4. EXEMESTANE. [Concomitant]
     Active Substance: EXEMESTANE
     Indication: HER2 POSITIVE BREAST CANCER
     Dosage: 25 MG, QD
     Route: 065
     Dates: start: 20200918

REACTIONS (1)
  - Skin toxicity [Recovered/Resolved]
